FAERS Safety Report 8911555 (Version 1)
Quarter: 2012Q4

REPORT INFORMATION
  Report Type: Spontaneous
  Country: US (occurrence: None)
  Receive Date: 20121114
  Receipt Date: 20121114
  Transmission Date: 20130627
  Serious: No
  Sender: FDA-Public Use
  Company Number: None

PATIENT
  Age: 60 Year
  Sex: Female

DRUGS (1)
  1. ERYTHROMYCIN [Suspect]

REACTIONS (2)
  - Documented hypersensitivity to administered drug [None]
  - Drug prescribing error [None]
